FAERS Safety Report 24699330 (Version 2)
Quarter: 2024Q4

REPORT INFORMATION
  Report Type: Report from Study
  Country: US (occurrence: US)
  Receive Date: 20241205
  Receipt Date: 20241226
  Transmission Date: 20250115
  Serious: Yes (Other)
  Sender: ABBVIE
  Company Number: US-ABBVIE-6030644

PATIENT
  Sex: Male
  Weight: 83.914 kg

DRUGS (3)
  1. SKYRIZI [Suspect]
     Active Substance: RISANKIZUMAB-RZAA
     Indication: Psoriasis
     Dosage: FORM STRENGTH: 150?FORM STRENGTH UNITS: MILLIGRAM
     Route: 058
     Dates: start: 2022
  2. ATORVASTATIN [Concomitant]
     Active Substance: ATORVASTATIN
     Indication: Blood cholesterol
  3. ATENOLOL [Concomitant]
     Active Substance: ATENOLOL
     Indication: Hypertension

REACTIONS (1)
  - Cataract [Not Recovered/Not Resolved]
